FAERS Safety Report 10367703 (Version 1)
Quarter: 2014Q1

REPORT INFORMATION
  Report Type: Spontaneous
  Country: US (occurrence: None)
  Receive Date: 20140306
  Receipt Date: 20140306
  Transmission Date: 20141002
  Serious: Yes (Hospitalization, Other)
  Sender: FDA-Public Use
  Company Number: 163-21880-12082365

PATIENT
  Age: 63 Year
  Sex: Female
  Weight: 67.1 kg

DRUGS (10)
  1. REVLIMID (LENALIDOMIDE) (25 MILLIGRAM, CAPSULES) [Suspect]
     Indication: PLASMA CELL MYELOMA
     Route: 048
     Dates: start: 20120702
  2. ASA (ACETYLSALICYLIC ACID) (UNKNOWN) [Concomitant]
  3. CALTRATE WITH VITAMIN D (LEKOVIT CA) (UNKNOWN) [Concomitant]
  4. MAXZIDE (DYAZIDE) (UNKNOWN) [Concomitant]
  5. TOPROL XL (METOPROLOL SUCCINATE) (UNKNOWN) [Concomitant]
  6. DECADRON (DEXAMETHASONE) (UNKNOWN) [Concomitant]
  7. VELCADE (BORTEZOMIB (UNKNOWN) [Concomitant]
  8. XANAX (ALPRAZOLAM) (UNKNOWN) [Concomitant]
  9. AMBIEN (ZOLPIDEM TARTRATE) (UNKNOWN) [Concomitant]
  10. AMLODIPINE BESYLATE (AMLODIPINE BESILATE) (TABLETS) [Concomitant]

REACTIONS (8)
  - Pyrexia [None]
  - Neutropenia [None]
  - Bacteraemia [None]
  - Deep vein thrombosis [None]
  - Hypertension [None]
  - Full blood count decreased [None]
  - Herpes zoster [None]
  - Drug dose omission [None]
